FAERS Safety Report 8034380 (Version 2)
Quarter: 2013Q2

REPORT INFORMATION
  Report Type: Spontaneous
  Country: US (occurrence: None)
  Receive Date: 20110624
  Receipt Date: 20120626
  Transmission Date: 20140414
  Serious: Yes (Other)
  Sender: FDA-Public Use
  Company Number: US-JNJFOC-20110304511

PATIENT
  Age: 49 Year
  Sex: Female
  Weight: 63.5 kg

DRUGS (3)
  1. PEPCID AC [Suspect]
     Indication: GASTRIC DISORDER
     Dosage: IN 1 DAY, ORAL
     Route: 048
     Dates: start: 1999
  2. PEPCID AC [Suspect]
     Indication: GASTROOESOPHAGEAL REFLUX DISEASE
     Dosage: IN 1 DAY, ORAL
     Route: 048
     Dates: start: 1999
  3. TYLENOL (PARACETAMOL) [Concomitant]
     Indication: GASTRIC DISORDER

REACTIONS (7)
  - OVERDOSE [None]
  - ABDOMINAL DISCOMFORT [None]
  - DRUG INEFFECTIVE [None]
  - MUSCLE TIGHTNESS [None]
  - ERUCTATION [None]
  - THROAT IRRITATION [None]
  - PRODUCT QUALITY ISSUE [None]
